FAERS Safety Report 19538810 (Version 1)
Quarter: 2021Q3

REPORT INFORMATION
  Report Type: Spontaneous
  Country: US (occurrence: US)
  Receive Date: 20210714
  Receipt Date: 20210714
  Transmission Date: 20211014
  Serious: Yes (Disabling)
  Sender: FDA-Public Use
  Company Number: None

PATIENT
  Age: 33 Year
  Sex: Female

DRUGS (6)
  1. SERTRALINE 100 MG TABLET [Concomitant]
     Active Substance: SERTRALINE HYDROCHLORIDE
     Dates: start: 20180727
  2. INVEGA SUSTENNA [Suspect]
     Active Substance: PALIPERIDONE PALMITATE
     Indication: SCHIZOPHRENIA
     Dosage: ?          OTHER FREQUENCY:MONTHLY;?
     Route: 030
     Dates: start: 20190619, end: 20210702
  3. QUETIAPINE 300 MG ORAL TABLER [Concomitant]
     Dates: start: 20191115
  4. BENZTROPINE 0.5 MG TABLET [Concomitant]
     Dates: start: 20190501
  5. INVEGA SUSTENNA [Suspect]
     Active Substance: PALIPERIDONE PALMITATE
     Indication: SCHIZOPHRENIA
     Dosage: ?          OTHER FREQUENCY:ONCE MONTLY;?
     Route: 030
     Dates: start: 20210702
  6. INVEGA 40 MG TABLET [Concomitant]
     Dates: start: 20200807

REACTIONS (1)
  - Amenorrhoea [None]

NARRATIVE: CASE EVENT DATE: 20210702
